FAERS Safety Report 6129665-3 (Version None)
Quarter: 2009Q1

REPORT INFORMATION
  Report Type: 
  Country: None (occurrence: None)
  Receive Date: 20090324
  Receipt Date: 20090313
  Transmission Date: 20090719
  Serious: Yes (Death)
  Sender: FDA-Public Use
  Company Number: FR-ELI_LILLY_AND_COMPANY-FR200903003351

PATIENT
  Age: 43 Year
  Sex: Female
  Weight: 130 kg

DRUGS (5)
  1. CYMBALTA [Suspect]
     Indication: DEPRESSION
     Dosage: 60 MG, DAILY (1/D)
     Route: 048
     Dates: start: 20080701, end: 20090201
  2. CYMBALTA [Suspect]
     Dosage: 120 MG, DAILY (1/D)
     Route: 048
     Dates: start: 20090201
  3. STILNOX [Concomitant]
     Indication: DEPRESSION
     Dosage: 7.5 MG, DAILY (1/D)
     Route: 048
  4. XANAX [Concomitant]
     Indication: DEPRESSION
     Dosage: 1.5 MG, DAILY (1/D)
     Route: 048
  5. IXPRIM [Concomitant]
     Indication: FIBROMYALGIA
     Dosage: UNK, UNKNOWN
     Route: 048

REACTIONS (2)
  - CARDIAC ARREST [None]
  - MYOCARDIAL INFARCTION [None]
